FAERS Safety Report 8845480 (Version 2)
Quarter: 2012Q4

REPORT INFORMATION
  Report Type: 
  Country: CN (occurrence: CN)
  Receive Date: 20121017
  Receipt Date: 20121025
  Transmission Date: 20130627
  Serious: Yes (Other)
  Sender: FDA-Public Use
  Company Number: US-ASTRAZENECA-2012SE78183

PATIENT
  Age: 75 Year
  Sex: Female

DRUGS (2)
  1. NEXIUM [Suspect]
     Indication: GASTROINTESTINAL HAEMORRHAGE
     Route: 042
     Dates: start: 201201
  2. OCTREOTIDE [Concomitant]
     Indication: ASTRINGENT THERAPY

REACTIONS (2)
  - Haematuria [Recovering/Resolving]
  - Generalised erythema [Recovered/Resolved]
